FAERS Safety Report 8187827 (Version 2)
Quarter: 2012Q4

REPORT INFORMATION
  Report Type: Report from Study
  Country: US (occurrence: AR)
  Receive Date: 20111018
  Receipt Date: 20121008
  Transmission Date: 20130627
  Serious: Yes (Other)
  Sender: FDA-Public Use
  Company Number: US-GILEAD-2011-0044716

PATIENT
  Age: 0 Year
  Sex: Female

DRUGS (5)
  1. EMTRICITABINE/TENOFOVIR DISOPROXIL FUMARATE [Suspect]
     Indication: HIV INFECTION
     Dosage: 1 DF, UNK
     Route: 048
     Dates: start: 20091126, end: 20100105
  2. KALETRA [Concomitant]
     Indication: HIV INFECTION
     Dosage: UNK
     Dates: start: 20090615, end: 20091126
  3. COMBIVIR [Concomitant]
     Indication: HIV INFECTION
     Dosage: UNK
     Dates: start: 20090615, end: 20100105
  4. PREZISTA                           /05513801/ [Concomitant]
     Indication: HIV INFECTION
     Dosage: UNK
     Dates: start: 20091126, end: 20100105
  5. FUZEON [Concomitant]
     Indication: HIV INFECTION
     Dosage: UNK
     Dates: start: 20091126, end: 20100105

REACTIONS (1)
  - Low birth weight baby [Unknown]
